FAERS Safety Report 9248228 (Version 1)
Quarter: 2013Q2

REPORT INFORMATION
  Report Type: Spontaneous
  Country: US (occurrence: US)
  Receive Date: 20130423
  Receipt Date: 20130423
  Transmission Date: 20140414
  Serious: No
  Sender: FDA-Public Use
  Company Number: US-PFIZER INC-2013122461

PATIENT
  Sex: Female
  Weight: 68.03 kg

DRUGS (5)
  1. TIKOSYN [Suspect]
     Indication: ATRIAL FIBRILLATION
     Dosage: 250 UG, 2X/DAY
     Dates: start: 20130131
  2. PROPANOLOL HCL [Suspect]
     Indication: ATRIAL FIBRILLATION
     Dosage: 10 MG, 2X/DAY
     Dates: end: 201301
  3. NADOLOL [Suspect]
     Indication: ATRIAL FIBRILLATION
     Dosage: 20 MG, 1X/DAY
     Dates: start: 20130110, end: 20130131
  4. NADOLOL [Suspect]
     Dosage: 10 MG, 1X/DAY
     Dates: start: 20130131
  5. FUROSEMIDE [Concomitant]
     Dosage: 20 MG, 1X/DAY

REACTIONS (3)
  - Drug ineffective [Unknown]
  - Dizziness [Unknown]
  - Abdominal discomfort [Unknown]
